FAERS Safety Report 20048467 (Version 1)
Quarter: 2021Q4

REPORT INFORMATION
  Report Type: Report from Study
  Country: US (occurrence: None)
  Receive Date: 20211109
  Receipt Date: 20211109
  Transmission Date: 20220303
  Serious: Yes (Death)
  Sender: FDA-Public Use
  Company Number: 2021A799217

PATIENT
  Sex: Male

DRUGS (2)
  1. LYNPARZA [Suspect]
     Active Substance: OLAPARIB
     Indication: Pancreatic carcinoma
     Route: 048
     Dates: start: 202108, end: 202111
  2. LYNPARZA [Suspect]
     Active Substance: OLAPARIB
     Indication: Agranulocytosis
     Route: 048
     Dates: start: 202108, end: 202111

REACTIONS (1)
  - Death [Fatal]
